FAERS Safety Report 8018182-1 (Version None)
Quarter: 2012Q1

REPORT INFORMATION
  Report Type: 
  Country: None (occurrence: None)
  Receive Date: 20120103
  Receipt Date: 20111230
  Transmission Date: 20120608
  Serious: Yes (Hospitalization, Other)
  Sender: FDA-Public Use
  Company Number: US-AMGEN-USASP2011065910

PATIENT
  Age: 63 Year
  Sex: Female

DRUGS (1)
  1. ENBREL [Suspect]
     Indication: RHEUMATOID ARTHRITIS
     Dosage: 50 MG, QWK
     Dates: start: 20010801

REACTIONS (7)
  - CORONARY ARTERY PERFORATION [None]
  - CARDIOPULMONARY FAILURE [None]
  - DYSPNOEA [None]
  - INJECTION SITE PAIN [None]
  - ATRIAL FIBRILLATION [None]
  - CHEST PAIN [None]
  - HAEMOPTYSIS [None]
